FAERS Safety Report 6266236-2 (Version None)
Quarter: 2009Q3

REPORT INFORMATION
  Report Type: 
  Country: None (occurrence: None)
  Receive Date: 20090713
  Receipt Date: 20090701
  Transmission Date: 20100115
  Serious: Yes (Death, Other)
  Sender: FDA-Public Use
  Company Number: US-PFIZER INC-2009221015

PATIENT
  Age: 17 Year
  Sex: Male
  Weight: 83.9 kg

DRUGS (1)
  1. ZIPRASIDONE HCL [Suspect]

REACTIONS (5)
  - CARDIOMEGALY [None]
  - CHEST PAIN [None]
  - DEATH [None]
  - PULMONARY ALVEOLAR HAEMORRHAGE [None]
  - PULMONARY CONGESTION [None]
